FAERS Safety Report 11589886 (Version 1)
Quarter: 2015Q4

REPORT INFORMATION
  Report Type: Spontaneous
  Country: DE (occurrence: DE)
  Receive Date: 20151002
  Receipt Date: 20151002
  Transmission Date: 20160304
  Serious: Yes (Other)
  Sender: FDA-Public Use
  Company Number: DE-HQ SPECIALTY-DE-2015INT000568

PATIENT
  Sex: Female

DRUGS (2)
  1. DOXORUBICIN [Suspect]
     Active Substance: DOXORUBICIN
     Indication: OVARIAN CANCER
     Dosage: 1.5 MG/M2 AT 12 MM HG AND 37 DEGREES C FOR 30 MINS
     Route: 033
  2. CISPLATIN. [Suspect]
     Active Substance: CISPLATIN
     Indication: OVARIAN CANCER
     Dosage: 7.5 MG/M2 AT 12 MM HG AND 37 DEGREES C FOR 30 MINS
     Route: 033

REACTIONS (1)
  - Intestinal fistula [Unknown]
